FAERS Safety Report 8773006 (Version 1)
Quarter: 2012Q4

REPORT INFORMATION
  Report Type: 
  Country: US (occurrence: US)
  Receive Date: 20120907
  Receipt Date: 20120907
  Transmission Date: 20130627
  Serious: Yes (Hospitalization)
  Sender: FDA-Public Use
  Company Number: US-PFIZER INC-2012219456

PATIENT
  Age: 51 Year
  Sex: Female
  Weight: 84.8 kg

DRUGS (3)
  1. VISTARIL [Suspect]
     Indication: DEPRESSION
     Dosage: 50 mg, as needed
     Route: 048
  2. ABILIFY [Concomitant]
     Indication: DEPRESSION
     Dosage: 10 mg, daily
  3. INVEGA SUSTENNA [Concomitant]
     Indication: DEPRESSION
     Dosage: 06 mg, daily

REACTIONS (3)
  - Angina pectoris [Recovered/Resolved]
  - Headache [Recovered/Resolved]
  - Dyspnoea [Recovered/Resolved]
